FAERS Safety Report 10044663 (Version 2)
Quarter: 2014Q2

REPORT INFORMATION
  Report Type: Report from Study
  Country: US (occurrence: US)
  Receive Date: 20140328
  Receipt Date: 20140404
  Transmission Date: 20141212
  Serious: Yes (Hospitalization)
  Sender: FDA-Public Use
  Company Number: US-ACTELION-A-US2014-96673

PATIENT
  Age: 59 Year
  Sex: Female

DRUGS (4)
  1. VENTAVIS [Suspect]
     Indication: PULMONARY ARTERIAL HYPERTENSION
     Dosage: 5 MCG, 3-9/DAY
     Route: 055
     Dates: start: 20130604
  2. TRACLEER [Suspect]
     Indication: PULMONARY ARTERIAL HYPERTENSION
     Dosage: UNK
     Route: 048
     Dates: start: 20130531
  3. OXYGEN [Concomitant]
     Dosage: 5 L, UNK
  4. OXYGEN [Concomitant]
     Dosage: 2 L, UNK

REACTIONS (4)
  - Nasopharyngitis [Recovered/Resolved]
  - Dyspnoea [Recovered/Resolved]
  - Oxygen saturation decreased [Recovered/Resolved]
  - Malaise [Unknown]
